FAERS Safety Report 18969315 (Version 2)
Quarter: 2021Q4

REPORT INFORMATION
  Report Type: Spontaneous
  Country: US (occurrence: US)
  Receive Date: 20210304
  Receipt Date: 20211005
  Transmission Date: 20220303
  Serious: Yes (Death, Hospitalization, Disabling, Other)
  Sender: FDA-Public Use
  Company Number: US-GILEAD-2021-0519188

PATIENT
  Age: 66 Year
  Sex: Male
  Weight: 83.9 kg

DRUGS (46)
  1. TECARTUS [Suspect]
     Active Substance: BREXUCABTAGENE AUTOLEUCEL
     Indication: Mantle cell lymphoma
     Dosage: SINGLE DOSE
     Route: 042
     Dates: start: 20210201, end: 20210201
  2. METHYLPREDNISOLONE [Concomitant]
     Active Substance: METHYLPREDNISOLONE
     Indication: Neurotoxicity
     Dosage: 1000 MG, QD
     Route: 042
     Dates: start: 20210210, end: 20210212
  3. MANNITOL [Concomitant]
     Active Substance: MANNITOL
     Indication: Evidence based treatment
     Dosage: 40 G, Q6H
     Route: 042
     Dates: start: 20210210, end: 20210211
  4. HALOPERIDOL [Concomitant]
     Active Substance: HALOPERIDOL
     Indication: Delirium
     Dosage: 2 MG, ONCE
     Route: 042
     Dates: start: 20210219, end: 20210219
  5. HALOPERIDOL [Concomitant]
     Active Substance: HALOPERIDOL
     Dosage: 1 MG, Q4HR PRN 7 DOSES
     Route: 042
     Dates: start: 20210210, end: 20210218
  6. HALOPERIDOL [Concomitant]
     Active Substance: HALOPERIDOL
     Dosage: 1 MG, Q4HR PRN 7 DOSES
     Route: 048
     Dates: start: 20210212, end: 20210218
  7. FLUMAZENIL [Concomitant]
     Active Substance: FLUMAZENIL
     Indication: Drug withdrawal syndrome
     Dosage: 0.2 MG EVERY 30 MINUTES PRN (1DOSE)
     Route: 042
     Dates: start: 20210207, end: 20210207
  8. ACYCLOVIR [Concomitant]
     Active Substance: ACYCLOVIR
     Indication: Prophylaxis
     Dosage: 800 MG, BID
     Route: 048
     Dates: start: 20210201, end: 20210209
  9. ACYCLOVIR [Concomitant]
     Active Substance: ACYCLOVIR
     Dosage: 200 MG, BID
     Route: 042
     Dates: start: 20210210, end: 20210216
  10. ACYCLOVIR [Concomitant]
     Active Substance: ACYCLOVIR
     Dosage: 800 MG, BID
     Route: 048
     Dates: start: 20210217, end: 20210219
  11. ALLOPURINOL [Concomitant]
     Active Substance: ALLOPURINOL
     Indication: Prophylaxis
     Dosage: 300 MG, QD
     Dates: start: 20210201, end: 20210209
  12. AMLODIPINE [Concomitant]
     Active Substance: AMLODIPINE BESYLATE
     Indication: Hypertension
     Dosage: UNK
     Dates: start: 20210217, end: 20210219
  13. CEFEPIME [Concomitant]
     Active Substance: CEFEPIME HYDROCHLORIDE
     Indication: Pyrexia
     Dosage: 1, Q6H
     Dates: start: 20210207, end: 20210211
  14. ATROPINE\DIPHENOXYLATE [Concomitant]
     Active Substance: ATROPINE\DIPHENOXYLATE
     Indication: Diarrhoea
     Dosage: 2.5 MG - 0.025 MG EVERY 6 HRS
     Dates: start: 20210208, end: 20210210
  15. DONEPEZIL [Concomitant]
     Active Substance: DONEPEZIL
     Indication: Dementia
     Dosage: 10 MG, QD
     Dates: start: 20210201, end: 20210218
  16. ENOXAPARIN [Concomitant]
     Active Substance: ENOXAPARIN
     Indication: Deep vein thrombosis
     Dosage: 80 MG, BID
     Route: 058
     Dates: start: 20210211, end: 20210219
  17. FLUCONAZOLE [Concomitant]
     Active Substance: FLUCONAZOLE
     Indication: Prophylaxis
     Dosage: 400 MG, QD
     Dates: start: 20210201, end: 20210209
  18. HYDRALAZINE [Concomitant]
     Active Substance: HYDRALAZINE HYDROCHLORIDE
     Indication: Hypertension
     Dosage: 10 MG, ONCE
     Dates: start: 20210211, end: 20210211
  19. HYDRALAZINE [Concomitant]
     Active Substance: HYDRALAZINE HYDROCHLORIDE
     Dosage: 10 MG, ONCE
     Dates: start: 20210217, end: 20210217
  20. LEVOFLOXACIN [Concomitant]
     Active Substance: LEVOFLOXACIN
     Indication: Prophylaxis
     Dosage: 500 MG, QD
     Dates: start: 20210201, end: 20210207
  21. LIDOCAINE [Concomitant]
     Active Substance: LIDOCAINE
     Dosage: 150 MG, ONCE
     Dates: start: 20210210, end: 20210210
  22. LOPERAMIDE [Concomitant]
     Active Substance: LOPERAMIDE
     Indication: Diarrhoea
     Dosage: 2 MG, Q4HR PRN (4 DOSES)
     Dates: start: 20210208, end: 20210209
  23. LOPERAMIDE [Concomitant]
     Active Substance: LOPERAMIDE
     Dosage: 2 MG, Q6H
     Dates: start: 20210209, end: 20210210
  24. LOPERAMIDE [Concomitant]
     Active Substance: LOPERAMIDE
     Dosage: 2 MG, Q3HR PRN (2 DOSES)
     Dates: start: 20210210, end: 20210219
  25. METOPROLOL [Concomitant]
     Active Substance: METOPROLOL
     Indication: Tachycardia
     Dosage: 25 MG X1DOSE
     Dates: start: 20210207, end: 20210207
  26. MINERALS\VITAMINS [Concomitant]
     Active Substance: MINERALS\VITAMINS
     Indication: Nutritional supplementation
     Dosage: 1 TAB DAILY
     Dates: start: 20210215, end: 20210217
  27. ONDANSETRON [Concomitant]
     Active Substance: ONDANSETRON
     Indication: Nausea
     Dosage: 8 MG, ONCE
     Dates: start: 20210219, end: 20210219
  28. ONDANSETRON [Concomitant]
     Active Substance: ONDANSETRON
     Dosage: 8 MG, ONCE
     Dates: start: 20210209, end: 20210209
  29. ONDANSETRON [Concomitant]
     Active Substance: ONDANSETRON
     Dosage: 4 MG, Q6H PRN (2 DOSES)
     Route: 042
     Dates: start: 20210210, end: 20210219
  30. SODIUM CHLORIDE [Concomitant]
     Active Substance: SODIUM CHLORIDE
     Indication: Acute kidney injury
     Dosage: 500 ML BOLUSX1
     Dates: start: 20210207, end: 20210207
  31. SODIUM CHLORIDE [Concomitant]
     Active Substance: SODIUM CHLORIDE
     Dosage: 100 UNK
     Dates: start: 20210207, end: 20210209
  32. FILGRASTIM [Concomitant]
     Active Substance: FILGRASTIM
     Indication: Neutropenia
     Dosage: 480 MCG, QD
     Dates: start: 20210207, end: 20210209
  33. VANCOMYCIN [Concomitant]
     Active Substance: VANCOMYCIN
     Indication: Pyrexia
     Dosage: 1 G, BID
     Dates: start: 20210208, end: 20210211
  34. ACETAMINOPHEN [Concomitant]
     Active Substance: ACETAMINOPHEN
     Indication: Pain
     Dosage: 650 MG, Q6H PRN (6 DOSES)
     Dates: start: 20210207, end: 20210219
  35. ACETAMINOPHEN [Concomitant]
     Active Substance: ACETAMINOPHEN
     Indication: Pyrexia
  36. DIPHENHYDRAMINE [Concomitant]
     Active Substance: DIPHENHYDRAMINE
     Indication: Pruritus
     Dosage: 25 MG, Q4HR
     Dates: start: 20210201, end: 20210219
  37. INSULIN ASPART [Concomitant]
     Active Substance: INSULIN ASPART
     Indication: Hyperglycaemia
     Dosage: SLIDING SCALE PRN
     Dates: start: 20210212, end: 20210219
  38. LORAZEPAM [Concomitant]
     Active Substance: LORAZEPAM
     Indication: Nausea
     Dosage: 0.5 MG X 1 DOSE
     Dates: start: 20210207, end: 20210207
  39. LORAZEPAM [Concomitant]
     Active Substance: LORAZEPAM
     Indication: Anxiety
  40. PROCHLORPERAZINE [Concomitant]
     Active Substance: PROCHLORPERAZINE
     Indication: Nausea
     Dosage: 10 MG, Q6H (5 DOSES)
     Route: 042
     Dates: start: 20210201, end: 20210219
  41. NICARDIPINE [Concomitant]
     Active Substance: NICARDIPINE
     Indication: Hypertension
     Dosage: 2.5 - 7.5 MG/HR CIVI
     Dates: start: 20210211, end: 20210213
  42. POTASSIUM CHLORIDE\SODIUM CHLORIDE [Concomitant]
     Active Substance: POTASSIUM CHLORIDE\SODIUM CHLORIDE
     Indication: Electrolyte substitution therapy
     Dosage: 100 ML/HR
     Dates: start: 20210209, end: 20210211
  43. AMINO ACIDS\CARBOHYDRATES\MINERALS\VITAMINS [Concomitant]
     Active Substance: AMINO ACIDS\CARBOHYDRATES\MINERALS\VITAMINS
     Indication: Nutritional supplementation
     Dosage: UNK
     Dates: start: 20210211, end: 20210213
  44. THIAMINE [Concomitant]
     Active Substance: THIAMINE
     Indication: Nutritional supplementation
     Dosage: 100 MG, INFUSE OVER 24 HRS
     Dates: start: 20210212, end: 20210213
  45. FAMOTIDINE [Concomitant]
     Active Substance: FAMOTIDINE
     Indication: Nutritional supplementation
     Dosage: INFUSE OVER 24 HRS
     Dates: start: 20210213, end: 20210216
  46. LOVENOX [Concomitant]
     Active Substance: ENOXAPARIN SODIUM

REACTIONS (9)
  - Death [Fatal]
  - Gastrointestinal haemorrhage [Unknown]
  - Deep vein thrombosis [Unknown]
  - Neurotoxicity [Unknown]
  - Confusional state [Unknown]
  - Cytokine release syndrome [Recovered/Resolved]
  - Serum ferritin increased [Not Recovered/Not Resolved]
  - C-reactive protein increased [Recovered/Resolved]
  - Blood creatine increased [Recovered/Resolved]

NARRATIVE: CASE EVENT DATE: 20210201
